FAERS Safety Report 7483914-8 (Version None)
Quarter: 2011Q2

REPORT INFORMATION
  Report Type: 
  Country: None (occurrence: None)
  Receive Date: 20110517
  Receipt Date: 20110509
  Transmission Date: 20111010
  Serious: Yes (Hospitalization, Other)
  Sender: FDA-Public Use
  Company Number: US-ASTRAZENECA-2011SE27057

PATIENT
  Age: 56 Year
  Sex: Male
  Weight: 64.4 kg

DRUGS (5)
  1. RANITIDINE [Concomitant]
  2. COREG [Concomitant]
  3. SEROQUEL [Suspect]
     Indication: BIPOLAR DISORDER
     Route: 048
     Dates: start: 20050101
  4. MORPHINE [Concomitant]
  5. LORTAB [Concomitant]

REACTIONS (4)
  - OESOPHAGEAL CARCINOMA [None]
  - SURGERY [None]
  - WEIGHT DECREASED [None]
  - NEOPLASM MALIGNANT [None]
